FAERS Safety Report 15749643 (Version 1)
Quarter: 2018Q4

REPORT INFORMATION
  Report Type: Spontaneous
  Country: US (occurrence: US)
  Receive Date: 20181221
  Receipt Date: 20181221
  Transmission Date: 20190205
  Serious: No
  Sender: FDA-Public Use
  Company Number: US-JNJFOC-20181138540

PATIENT
  Age: 72 Year
  Sex: Female
  Weight: 77.11 kg

DRUGS (1)
  1. NIZORAL A-D [Suspect]
     Active Substance: KETOCONAZOLE
     Indication: PRURITUS
     Dosage: QUARTER SIZE
     Route: 061
     Dates: end: 20181126

REACTIONS (1)
  - Alopecia [Unknown]
